FAERS Safety Report 15920109 (Version 1)
Quarter: 2019Q1

REPORT INFORMATION
  Report Type: Spontaneous
  Country: US (occurrence: US)
  Receive Date: 20190205
  Receipt Date: 20190205
  Transmission Date: 20190417
  Serious: No
  Sender: FDA-Public Use
  Company Number: US-ROCHE-2066368

PATIENT
  Sex: Male

DRUGS (16)
  1. XOLAIR [Suspect]
     Active Substance: OMALIZUMAB
     Indication: STATUS MIGRAINOSUS
  2. BOTOX [Concomitant]
     Active Substance: ONABOTULINUMTOXINA
  3. POTASSIUM CHLORIDE ERT [Concomitant]
  4. XOLAIR [Suspect]
     Active Substance: OMALIZUMAB
     Indication: MIGRAINE WITHOUT AURA
     Dosage: VIAL
     Route: 058
  5. XARELTO [Concomitant]
     Active Substance: RIVAROXABAN
  6. XARELTO [Concomitant]
     Active Substance: RIVAROXABAN
     Route: 065
  7. RAPAFLO [Concomitant]
     Active Substance: SILODOSIN
  8. ATORVASTATIN [Concomitant]
     Active Substance: ATORVASTATIN
  9. EFFEXOR XR [Concomitant]
     Active Substance: VENLAFAXINE HYDROCHLORIDE
     Route: 065
  10. PREDNISONE. [Concomitant]
     Active Substance: PREDNISONE
  11. DEPAKOTE [Concomitant]
     Active Substance: DIVALPROEX SODIUM
     Route: 065
  12. TOPAMAX [Concomitant]
     Active Substance: TOPIRAMATE
     Route: 065
  13. FINASTERIDE. [Concomitant]
     Active Substance: FINASTERIDE
  14. POTASSIUM CHLORIDE. [Concomitant]
     Active Substance: POTASSIUM CHLORIDE
  15. AZITHROMYCIN ANHYDROUS. [Concomitant]
     Active Substance: AZITHROMYCIN ANHYDROUS
  16. LIPITOR [Concomitant]
     Active Substance: ATORVASTATIN CALCIUM
     Route: 065

REACTIONS (3)
  - Intentional product use issue [Unknown]
  - Off label use [Unknown]
  - Strabismus [Recovered/Resolved]
